FAERS Safety Report 7646522-1 (Version None)
Quarter: 2011Q3

REPORT INFORMATION
  Report Type: 
  Country: None (occurrence: None)
  Receive Date: 20110729
  Receipt Date: 20110729
  Transmission Date: 20111222
  Serious: Yes (Other)
  Sender: FDA-Public Use
  Company Number: None

PATIENT
  Age: 18 Year
  Sex: Male

DRUGS (3)
  1. DIVALPROEX SODIUM EXTENDED RELEASE [Suspect]
     Indication: AUTISM
     Dosage: 500MG TW QAM ONE QPM ONE QHS O
     Route: 048
     Dates: start: 20110609, end: 20110615
  2. FLUOXETINE [Concomitant]
  3. RISPERDAL [Concomitant]

REACTIONS (4)
  - HEAD BANGING [None]
  - AGGRESSION [None]
  - BITE [None]
  - PRODUCT SUBSTITUTION ISSUE [None]
